FAERS Safety Report 13122161 (Version 1)
Quarter: 2017Q1

REPORT INFORMATION
  Report Type: Spontaneous
  Country: US (occurrence: US)
  Receive Date: 20170117
  Receipt Date: 20170117
  Transmission Date: 20170428
  Serious: Yes (Hospitalization)
  Sender: FDA-Public Use
  Company Number: US-PFIZER INC-2016582793

PATIENT
  Age: 59 Year
  Sex: Female

DRUGS (8)
  1. SUTENT [Suspect]
     Active Substance: SUNITINIB MALATE
     Indication: RENAL CELL CARCINOMA
     Dosage: 50 MG, CYCLIC, (DAILY; 4 WEEKS ON AND 2 WEEKS OFF/28 DAYS ON/14 DAYS OFF)
     Dates: start: 20161219
  2. VITAMIN C [Concomitant]
     Active Substance: ASCORBIC ACID
     Dosage: UNK
  3. PEPCID [Concomitant]
     Active Substance: FAMOTIDINE
     Dosage: UNK
  4. REPAGLINIDE. [Concomitant]
     Active Substance: REPAGLINIDE
     Dosage: UNK
  5. ZOFRAN [Concomitant]
     Active Substance: ONDANSETRON HYDROCHLORIDE
     Dosage: UNK
  6. AMLODIPINE [Concomitant]
     Active Substance: AMLODIPINE BESYLATE
     Dosage: UNK
  7. MAGNESIUM OXIDE. [Concomitant]
     Active Substance: MAGNESIUM OXIDE
     Dosage: UNK
  8. AMBIEN [Concomitant]
     Active Substance: ZOLPIDEM TARTRATE
     Dosage: UNK

REACTIONS (18)
  - Erythema [Unknown]
  - Palpitations [Unknown]
  - Blood pressure increased [Unknown]
  - Dyspepsia [Unknown]
  - Oedema peripheral [Unknown]
  - Glossodynia [Unknown]
  - Oral pain [Unknown]
  - Gait disturbance [Unknown]
  - Oral discomfort [Unknown]
  - Pruritus [Unknown]
  - Rash macular [Unknown]
  - Pain in extremity [Unknown]
  - Flushing [Unknown]
  - Blood glucose increased [Unknown]
  - Eating disorder [Unknown]
  - Diarrhoea [Unknown]
  - Stomatitis [Unknown]
  - Tongue discomfort [Unknown]
